FAERS Safety Report 11072724 (Version 1)
Quarter: 2015Q2

REPORT INFORMATION
  Report Type: Report from Study
  Country: US (occurrence: US)
  Receive Date: 20150428
  Receipt Date: 20150428
  Transmission Date: 20150821
  Serious: Yes (Hospitalization)
  Sender: FDA-Public Use
  Company Number: US-MERCK-1204USA01800

PATIENT
  Age: 60 Year
  Sex: Female
  Weight: 82.55 kg

DRUGS (18)
  1. BOCEPREVIR [Suspect]
     Active Substance: BOCEPREVIR
     Indication: INFECTION
     Dosage: 800 MG, TID
     Route: 048
     Dates: start: 20120314, end: 20120410
  2. PLACEBO [Suspect]
     Active Substance: UNSPECIFIED INGREDIENT
     Indication: INFECTION
  3. BOCEPREVIR [Suspect]
     Active Substance: BOCEPREVIR
     Indication: CHRONIC HEPATITIS C
     Dosage: 800 MG, TID
     Route: 048
     Dates: start: 20120124, end: 20120312
  4. BENADRYL [Concomitant]
     Active Substance: DIPHENHYDRAMINE HYDROCHLORIDE
     Indication: SEASONAL ALLERGY
     Dosage: 25 MG, PRN
     Route: 048
     Dates: start: 200903
  5. ATENOLOL. [Concomitant]
     Active Substance: ATENOLOL
     Indication: HYPERTENSION
     Dosage: 75 MG, QD
     Route: 048
     Dates: start: 20120119, end: 20120410
  6. RIBAVIRIN. [Suspect]
     Active Substance: RIBAVIRIN
     Indication: INFECTION
     Dosage: 3 UNK, UNK
     Route: 048
     Dates: start: 20111227, end: 20120204
  7. PEGINTERFERON ALFA-2B [Suspect]
     Active Substance: PEGINTERFERON ALFA-2B
     Dosage: 0.5 ML, QW
     Route: 058
     Dates: start: 20120129, end: 20120409
  8. RIBAVIRIN. [Suspect]
     Active Substance: RIBAVIRIN
     Dosage: 2 UNK, UNK
     Route: 048
     Dates: start: 20120326, end: 20120409
  9. RIBAVIRIN. [Suspect]
     Active Substance: RIBAVIRIN
     Dosage: 2 UNK, UNK
     Route: 048
     Dates: start: 20120407, end: 20120409
  10. RIBAVIRIN. [Suspect]
     Active Substance: RIBAVIRIN
     Indication: CHRONIC HEPATITIS C
     Dosage: 3 UNK, UNK
     Route: 048
     Dates: start: 20111227, end: 20120312
  11. RIBAVIRIN. [Suspect]
     Active Substance: RIBAVIRIN
     Dosage: 3 UNK, ONCE
     Route: 048
     Dates: start: 20111227, end: 20111227
  12. RIBAVIRIN. [Suspect]
     Active Substance: RIBAVIRIN
     Dosage: 3 UNK, UNK
     Route: 048
     Dates: start: 20120314, end: 20120406
  13. RIBAVIRIN. [Suspect]
     Active Substance: RIBAVIRIN
     Dosage: 3 UNK, UNK
     Route: 048
     Dates: start: 20120410, end: 20120410
  14. PLACEBO [Suspect]
     Active Substance: UNSPECIFIED INGREDIENT
     Indication: CHRONIC HEPATITIS C
     Dosage: BOTTLES A,B,C,D,E,F,G,H
     Route: 048
     Dates: start: 20111227, end: 20120312
  15. PEGINTERFERON ALFA-2B [Suspect]
     Active Substance: PEGINTERFERON ALFA-2B
     Indication: INFECTION
     Dosage: 0.3 ML, ONCE
     Route: 058
     Dates: start: 20120122, end: 20120122
  16. RIBAVIRIN. [Suspect]
     Active Substance: RIBAVIRIN
     Dosage: 3 UNK, UNK
     Route: 048
     Dates: start: 20120207, end: 20120311
  17. RIBAVIRIN. [Suspect]
     Active Substance: RIBAVIRIN
     Dosage: 3 UNK, UNK
     Route: 048
     Dates: start: 20120314, end: 20120325
  18. PEGINTERFERON ALFA-2B [Suspect]
     Active Substance: PEGINTERFERON ALFA-2B
     Indication: CHRONIC HEPATITIS C
     Dosage: 0.5 ML, QW
     Route: 058
     Dates: start: 20111227, end: 20120115

REACTIONS (1)
  - Atrial fibrillation [Recovered/Resolved]

NARRATIVE: CASE EVENT DATE: 20120410
